FAERS Safety Report 21594682 (Version 1)
Quarter: 2022Q4

REPORT INFORMATION
  Report Type: Spontaneous
  Country: US (occurrence: US)
  Receive Date: 20221115
  Receipt Date: 20221115
  Transmission Date: 20230112
  Serious: No
  Sender: FDA-Public Use
  Company Number: US-ENDO PHARMACEUTICALS INC-2021-012321

PATIENT
  Age: 72 Year
  Sex: Male
  Weight: 151.5 kg

DRUGS (6)
  1. VANTAS [Suspect]
     Active Substance: HISTRELIN ACETATE
     Indication: Prostate cancer
     Dosage: UNK UNKNOWN, ONCE A YEAR
     Route: 065
     Dates: start: 20090904
  2. VANTAS [Suspect]
     Active Substance: HISTRELIN ACETATE
     Indication: Prostate cancer
     Dosage: UNK UNKNOWN, ONCE A YEAR
     Route: 065
     Dates: start: 20090904
  3. VANTAS [Suspect]
     Active Substance: HISTRELIN ACETATE
     Dosage: UNK UNKNOWN, ONCE A YEAR
     Route: 065
     Dates: start: 20200826
  4. VANTAS [Suspect]
     Active Substance: HISTRELIN ACETATE
     Dosage: UNK UNKNOWN, ONCE A YEAR
     Route: 065
     Dates: start: 20200826
  5. VANTAS [Suspect]
     Active Substance: HISTRELIN ACETATE
     Dosage: UNK UNKNOWN, ONCE A YEAR
     Route: 065
     Dates: start: 2012, end: 2020
  6. VANTAS [Suspect]
     Active Substance: HISTRELIN ACETATE
     Dosage: UNK UNKNOWN, ONCE A YEAR
     Route: 065
     Dates: start: 2012, end: 2020

REACTIONS (2)
  - Prostatic specific antigen increased [Unknown]
  - Incorrect product administration duration [Not Recovered/Not Resolved]

NARRATIVE: CASE EVENT DATE: 20210801
